FAERS Safety Report 9684677 (Version 3)
Quarter: 2016Q3

REPORT INFORMATION
  Report Type: Report from Study
  Country: US (occurrence: US)
  Receive Date: 20131112
  Receipt Date: 20160715
  Transmission Date: 20161109
  Serious: Yes (Other)
  Sender: FDA-Public Use
  Company Number: US-ROCHE-1212708

PATIENT
  Sex: Female

DRUGS (17)
  1. LUCENTIS [Suspect]
     Active Substance: RANIBIZUMAB
     Indication: RETINAL VEIN OCCLUSION
     Route: 050
     Dates: start: 20120612, end: 20130327
  2. ADVIL [Concomitant]
     Active Substance: IBUPROFEN
     Indication: PYREXIA
     Route: 048
  3. ZELBORAF [Suspect]
     Active Substance: VEMURAFENIB
     Dosage: TWO TABLETS IN THE MORNING AND TWO IN THE EVENING
     Route: 048
  4. PEPCID [Concomitant]
     Active Substance: FAMOTIDINE
     Indication: DYSPEPSIA
     Dosage: AS REQUIRED
     Route: 048
  5. ALPHAGAN P [Concomitant]
     Active Substance: BRIMONIDINE TARTRATE
     Route: 047
  6. MOTRIN [Concomitant]
     Active Substance: IBUPROFEN
     Indication: PYREXIA
     Route: 048
  7. POTASSIUM CHLORIDE. [Concomitant]
     Active Substance: POTASSIUM CHLORIDE
     Route: 048
  8. HYDROCHLOROTHIAZIDE. [Concomitant]
     Active Substance: HYDROCHLOROTHIAZIDE
     Route: 048
  9. LUCENTIS [Suspect]
     Active Substance: RANIBIZUMAB
     Indication: VENOUS OCCLUSION
  10. ZELBORAF [Suspect]
     Active Substance: VEMURAFENIB
     Dosage: FOUR IN THE MORNING AND FOUR IN THE EVENING
     Route: 048
  11. LOMOTIL (UNITED STATES) [Concomitant]
     Indication: DIARRHOEA
     Route: 048
  12. AMLODIPINE [Concomitant]
     Active Substance: AMLODIPINE BESYLATE
     Indication: HYPERTENSION
  13. ZELBORAF [Suspect]
     Active Substance: VEMURAFENIB
     Indication: MALIGNANT MELANOMA
     Route: 048
     Dates: start: 20120211
  14. ZELBORAF [Suspect]
     Active Substance: VEMURAFENIB
     Indication: METASTASES TO LUNG
     Route: 048
  15. ZELBORAF [Suspect]
     Active Substance: VEMURAFENIB
     Dosage: 2 TAB (480MG) ORAL TWICE A DAY
     Route: 048
  16. NEXAVAR [Concomitant]
     Active Substance: SORAFENIB
  17. SYNTHROID [Concomitant]
     Active Substance: LEVOTHYROXINE SODIUM
     Indication: HYPOTHYROIDISM
     Route: 065

REACTIONS (18)
  - Ocular hyperaemia [Recovered/Resolved]
  - Diarrhoea [Recovered/Resolved]
  - Dyspepsia [Recovering/Resolving]
  - Abdominal distension [Not Recovered/Not Resolved]
  - Flatulence [Not Recovered/Not Resolved]
  - Vitreous floaters [Not Recovered/Not Resolved]
  - Decreased appetite [Recovered/Resolved]
  - Paraesthesia [Not Recovered/Not Resolved]
  - Dehydration [Recovered/Resolved]
  - Pyrexia [Recovered/Resolved]
  - Blister [Recovered/Resolved]
  - Peripheral swelling [Recovered/Resolved]
  - Retinal vein occlusion [Not Recovered/Not Resolved]
  - Abdominal discomfort [Recovered/Resolved]
  - Flushing [Recovered/Resolved]
  - Vision blurred [Not Recovered/Not Resolved]
  - Nausea [Recovering/Resolving]
  - Venous occlusion [Not Recovered/Not Resolved]
